FAERS Safety Report 8311220-8 (Version None)
Quarter: 2012Q2

REPORT INFORMATION
  Report Type: 
  Country: None (occurrence: None)
  Receive Date: 20120425
  Receipt Date: 20120421
  Transmission Date: 20120825
  Serious: Yes (Other)
  Sender: FDA-Public Use
  Company Number: BR-GLAXOSMITHKLINE-A0974995A

PATIENT
  Age: 20 Year
  Sex: Male
  Weight: 73 kg

DRUGS (1)
  1. NICOTINE [Suspect]
     Indication: SMOKING CESSATION THERAPY
     Dosage: 1PAT PER DAY
     Route: 062
     Dates: start: 20120420, end: 20120421

REACTIONS (4)
  - HEADACHE [None]
  - HALLUCINATION [None]
  - NAUSEA [None]
  - MALAISE [None]
